FAERS Safety Report 12094342 (Version 4)
Quarter: 2016Q3

REPORT INFORMATION
  Report Type: Spontaneous
  Country: BR (occurrence: BR)
  Receive Date: 20160219
  Receipt Date: 20160920
  Transmission Date: 20161109
  Serious: Yes (Other)
  Sender: FDA-Public Use
  Company Number: BR-JNJFOC-20160120006

PATIENT
  Age: 57 Year
  Sex: Female
  Weight: 58 kg

DRUGS (6)
  1. PREDNISONA [Concomitant]
     Active Substance: PREDNISONE
     Route: 065
  2. CALCIUM [Concomitant]
     Active Substance: CALCIUM
     Route: 065
  3. SIMPONI [Suspect]
     Active Substance: GOLIMUMAB
     Indication: RHEUMATOID ARTHRITIS
     Route: 058
  4. SULFASALAZINE. [Concomitant]
     Active Substance: SULFASALAZINE
     Route: 065
  5. OMEPRAZOLE. [Concomitant]
     Active Substance: OMEPRAZOLE
     Route: 065
  6. SIMPONI [Suspect]
     Active Substance: GOLIMUMAB
     Indication: RHEUMATOID ARTHRITIS
     Route: 058
     Dates: start: 20151222, end: 20160122

REACTIONS (7)
  - Pneumonia [Recovered/Resolved]
  - Blood cholesterol increased [Unknown]
  - Drug dose omission [Unknown]
  - Hyperglycaemia [Unknown]
  - Rheumatoid arthritis [Not Recovered/Not Resolved]
  - Lung disorder [Unknown]
  - Incorrect product storage [Unknown]

NARRATIVE: CASE EVENT DATE: 2016
